FAERS Safety Report 18764605 (Version 1)
Quarter: 2021Q1

REPORT INFORMATION
  Report Type: Spontaneous
  Country: US (occurrence: US)
  Receive Date: 20210120
  Receipt Date: 20210120
  Transmission Date: 20210419
  Serious: Yes (Other)
  Sender: FDA-Public Use
  Company Number: US-BRISTOL-MYERS SQUIBB COMPANY-BMS-2021-004003

PATIENT
  Age: 76 Year
  Sex: Female

DRUGS (5)
  1. ADEMPAS [Concomitant]
     Active Substance: RIOCIGUAT
     Indication: PRODUCT USED FOR UNKNOWN INDICATION
     Dosage: UNK
     Route: 065
  2. ADCIRCA [Concomitant]
     Active Substance: TADALAFIL
     Indication: PRODUCT USED FOR UNKNOWN INDICATION
     Dosage: UNK
     Route: 065
  3. UPTRAVI [Suspect]
     Active Substance: SELEXIPAG
     Dosage: 200 MICROGRAM, BID
     Route: 048
     Dates: start: 20191119, end: 20200826
  4. ELIQUIS [Suspect]
     Active Substance: APIXABAN
     Indication: PRODUCT USED FOR UNKNOWN INDICATION
     Dosage: UNK
     Route: 065
  5. UPTRAVI [Suspect]
     Active Substance: SELEXIPAG
     Indication: PULMONARY ARTERIAL HYPERTENSION
     Dosage: 200 MICROGRAM, BID
     Route: 048
     Dates: start: 20191210

REACTIONS (9)
  - Influenza like illness [Unknown]
  - Retinal detachment [Unknown]
  - Glaucoma [Unknown]
  - Nasopharyngitis [Unknown]
  - Cataract [Unknown]
  - Flushing [Unknown]
  - Thrombosis [Not Recovered/Not Resolved]
  - Fatigue [Unknown]
  - Dysphonia [Unknown]

NARRATIVE: CASE EVENT DATE: 20200303
